FAERS Safety Report 24541458 (Version 2)
Quarter: 2024Q4

REPORT INFORMATION
  Report Type: Spontaneous
  Country: JP (occurrence: JP)
  Receive Date: 20241023
  Receipt Date: 20241204
  Transmission Date: 20250115
  Serious: Yes (Hospitalization, Other)
  Sender: MERCK
  Company Number: JP-MSD-M2024-41827

PATIENT
  Age: 8 Decade
  Sex: Male

DRUGS (6)
  1. KEYTRUDA [Suspect]
     Active Substance: PEMBROLIZUMAB
     Indication: Laryngeal cancer recurrent
     Dosage: 200 MILLIGRAM, Q3W
     Route: 041
     Dates: start: 20221101, end: 2023
  2. KEYTRUDA [Suspect]
     Active Substance: PEMBROLIZUMAB
     Indication: PD-L1 positive cancer
  3. CISPLATIN [Concomitant]
     Active Substance: CISPLATIN
     Indication: Laryngeal cancer recurrent
     Dosage: UNK
     Route: 065
     Dates: start: 20221101, end: 202212
  4. CISPLATIN [Concomitant]
     Active Substance: CISPLATIN
     Indication: PD-L1 positive cancer
  5. FLUOROURACIL [Concomitant]
     Active Substance: FLUOROURACIL
     Indication: Laryngeal cancer recurrent
     Dosage: UNK
     Route: 065
     Dates: start: 20221101, end: 202212
  6. FLUOROURACIL [Concomitant]
     Active Substance: FLUOROURACIL
     Indication: PD-L1 positive cancer

REACTIONS (3)
  - Optic neuritis [Unknown]
  - Pneumocystis jirovecii pneumonia [Recovering/Resolving]
  - Renal impairment [Unknown]

NARRATIVE: CASE EVENT DATE: 20231001
